FAERS Safety Report 10731802 (Version 3)
Quarter: 2015Q1

REPORT INFORMATION
  Report Type: Spontaneous
  Country: US (occurrence: US)
  Receive Date: 20150123
  Receipt Date: 20150319
  Transmission Date: 20150721
  Serious: No
  Sender: FDA-Public Use
  Company Number: US-009507513-1501USA008138

PATIENT
  Age: 9 Year
  Sex: Female

DRUGS (2)
  1. ASMANEX [Suspect]
     Active Substance: MOMETASONE FUROATE
     Indication: ASTHMA
     Dosage: 110 MCG/ONE PUFF PER DAY IN THE EVENING
     Route: 055
     Dates: start: 20150116
  2. ALBUTEROL. [Concomitant]
     Active Substance: ALBUTEROL
     Route: 055

REACTIONS (3)
  - Drug ineffective [Not Recovered/Not Resolved]
  - Therapy change [Unknown]
  - Product quality issue [Unknown]

NARRATIVE: CASE EVENT DATE: 20150116
